FAERS Safety Report 5603512-8 (Version None)
Quarter: 2008Q1

REPORT INFORMATION
  Report Type: 
  Country: None (occurrence: None)
  Receive Date: 20080122
  Receipt Date: 20080109
  Transmission Date: 20080703
  Serious: Yes (Other)
  Sender: FDA-Public Use
  Company Number: 2008BI000617

PATIENT
  Age: 45 Year
  Sex: Female
  Weight: 48.9885 kg

DRUGS (1)
  1. AVONEX [Suspect]
     Indication: MULTIPLE SCLEROSIS
     Dosage: 30 UG; QW; IM
     Route: 030
     Dates: start: 20000505

REACTIONS (2)
  - LYMPHOMA [None]
  - MALIGNANT NEOPLASM OF ORBIT [None]
